FAERS Safety Report 5834311-X (Version None)
Quarter: 2008Q3

REPORT INFORMATION
  Report Type: 
  Country: None (occurrence: None)
  Receive Date: 20080722
  Receipt Date: 20071106
  Transmission Date: 20090109
  Serious: Yes (Hospitalization)
  Sender: FDA-Public Use
  Company Number: 2007BI023738

PATIENT
  Sex: Female

DRUGS (4)
  1. AVONEX [Suspect]
     Indication: RELAPSING-REMITTING MULTIPLE SCLEROSIS
     Dosage: IM
     Route: 030
     Dates: start: 19960601, end: 20050802
  2. AVONEX [Suspect]
     Indication: RELAPSING-REMITTING MULTIPLE SCLEROSIS
     Dosage: IM
     Route: 030
     Dates: start: 20061020, end: 20070901
  3. PREVACID [Concomitant]
  4. BETASERON [Concomitant]

REACTIONS (1)
  - CHEST PAIN [None]
